FAERS Safety Report 9461235 (Version 4)
Quarter: 2013Q3

REPORT INFORMATION
  Report Type: Spontaneous
  Country: US (occurrence: US)
  Receive Date: 20130816
  Receipt Date: 20130926
  Transmission Date: 20140515
  Serious: Yes (Other)
  Sender: FDA-Public Use
  Company Number: US-PFIZER INC-2013236789

PATIENT
  Age: 78 Year
  Sex: Female
  Weight: 63.49 kg

DRUGS (11)
  1. SUTENT [Suspect]
     Dosage: 50MG DAILY FOR 2 WEEKS ON AND ONE WEEK OFF
  2. SUTENT [Suspect]
     Dosage: 37.5 MG, CYCLIC (DAILY 14 DAYS ON, 1WEEK OFF
     Dates: end: 20130905
  3. METHOTREXATE [Concomitant]
     Dosage: UNK
  4. LEFLUNOMIDE [Concomitant]
     Dosage: UNK
  5. PREDNISONE [Concomitant]
     Dosage: UNK
  6. LOSARTAN [Concomitant]
     Dosage: UNK
  7. FOLIC ACID [Concomitant]
     Dosage: UNK
  8. CALCIUM [Concomitant]
     Indication: BONE DISORDER
     Dosage: UNK
  9. MAGNESIUM [Concomitant]
     Indication: BONE DISORDER
     Dosage: UNK
  10. VITAMIN D [Concomitant]
     Indication: BONE DISORDER
     Dosage: UNK
  11. VITAMIN K [Concomitant]
     Indication: BONE DISORDER
     Dosage: UNK

REACTIONS (15)
  - Cellulitis [Unknown]
  - Skin fissures [Unknown]
  - Pain in extremity [Recovering/Resolving]
  - Skin infection [Unknown]
  - Skin ulcer [Unknown]
  - Gait disturbance [Unknown]
  - Skin disorder [Not Recovered/Not Resolved]
  - Skin warm [Recovered/Resolved]
  - Rash [Unknown]
  - Mobility decreased [Unknown]
  - Hypertension [Unknown]
  - Skin irritation [Not Recovered/Not Resolved]
  - Blister [Not Recovered/Not Resolved]
  - Dry skin [Not Recovered/Not Resolved]
  - Oedema peripheral [Unknown]
